FAERS Safety Report 8466207-1 (Version None)
Quarter: 2012Q2

REPORT INFORMATION
  Report Type: 
  Country: None (occurrence: None)
  Receive Date: 20120620
  Receipt Date: 20120620
  Transmission Date: 20120825
  Serious: Yes (Other)
  Sender: FDA-Public Use
  Company Number: None

PATIENT
  Age: 38 Year
  Sex: Female
  Weight: 42.1845 kg

DRUGS (2)
  1. EXCEDRIN (MIGRAINE) [Suspect]
     Indication: TOOTHACHE
     Dosage: 1 TABLET 4TIMES DAY DENTAL
     Route: 004
     Dates: start: 20060902, end: 20120510
  2. EXCEDRIN (MIGRAINE) [Suspect]
     Indication: HEADACHE
     Dosage: 1 TABLET 4TIMES DAY DENTAL
     Route: 004
     Dates: start: 20060902, end: 20120510

REACTIONS (2)
  - ULCER [None]
  - WEIGHT DECREASED [None]
